FAERS Safety Report 9790097 (Version 1)
Quarter: 2013Q4

REPORT INFORMATION
  Report Type: Spontaneous
  Country: US (occurrence: None)
  Receive Date: 20131230
  Receipt Date: 20131230
  Transmission Date: 20140711
  Serious: Yes (Hospitalization)
  Sender: FDA-Public Use
  Company Number: None

PATIENT
  Age: 69 Year
  Sex: Male
  Weight: 106 kg

DRUGS (5)
  1. FLUOROURACIL [Suspect]
     Route: 042
  2. TAXOL [Suspect]
     Route: 042
  3. TAXOL [Concomitant]
  4. 5FU [Concomitant]
  5. HYDROXUREA [Concomitant]

REACTIONS (6)
  - Urinary tract infection [None]
  - Leukocytosis [None]
  - Transaminases increased [None]
  - Blood alkaline phosphatase increased [None]
  - Mental status changes [None]
  - Prerenal failure [None]
